FAERS Safety Report 8071669-8 (Version None)
Quarter: 2012Q1

REPORT INFORMATION
  Report Type: 
  Country: None (occurrence: None)
  Receive Date: 20120125
  Receipt Date: 20120112
  Transmission Date: 20120608
  Serious: Yes (Other)
  Sender: FDA-Public Use
  Company Number: US-JUTA GMBH-2011-15534

PATIENT
  Age: 67 Year
  Sex: Female

DRUGS (1)
  1. ZOLPIDEM TARTRATE [Suspect]
     Indication: PRODUCT USED FOR UNKNOWN INDICATION
     Dosage: 10 MG AT BEDTIME
     Route: 065

REACTIONS (3)
  - DELIRIUM [None]
  - MANIA [None]
  - DISORIENTATION [None]
